FAERS Safety Report 7322012-0 (Version None)
Quarter: 2011Q1

REPORT INFORMATION
  Report Type: 
  Country: None (occurrence: None)
  Receive Date: 20110228
  Receipt Date: 20110214
  Transmission Date: 20110831
  Serious: Yes (Life-Threatening, Hospitalization, Other)
  Sender: FDA-Public Use
  Company Number: DE-CELGENEUS-062-21880-10101799

PATIENT
  Sex: Male

DRUGS (6)
  1. DEXAMETHASONE [Suspect]
     Route: 065
     Dates: start: 20101007
  2. CYCLOPHOSPHAMIDE [Concomitant]
     Route: 065
     Dates: start: 20101007
  3. REVLIMID [Suspect]
     Indication: MULTIPLE MYELOMA
     Route: 048
     Dates: start: 20100913
  4. DEXAMETHASONE [Suspect]
     Indication: MULTIPLE MYELOMA
     Route: 048
     Dates: start: 20100901
  5. VELCADE [Concomitant]
     Route: 065
     Dates: start: 20101007
  6. ELOTUZUMAB [Suspect]
     Indication: MULTIPLE MYELOMA
     Route: 051
     Dates: start: 20100902

REACTIONS (5)
  - HYPOTENSION [None]
  - VISCERAL LEISHMANIASIS [None]
  - PYREXIA [None]
  - PANCYTOPENIA [None]
  - TACHYCARDIA [None]
